FAERS Safety Report 5841204-0 (Version None)
Quarter: 2008Q3

REPORT INFORMATION
  Report Type: 
  Country: None (occurrence: None)
  Receive Date: 20080812
  Receipt Date: 20080806
  Transmission Date: 20090109
  Serious: Yes (Other)
  Sender: FDA-Public Use
  Company Number: NL-JNJFOC-20080801384

PATIENT
  Age: 4 Year
  Sex: Male

DRUGS (4)
  1. ACETAMINOPHEN [Suspect]
  2. ACETAMINOPHEN [Suspect]
     Indication: DRUG USE FOR UNKNOWN INDICATION
  3. VALPROIC ACID [Suspect]
     Indication: MYOCLONIC EPILEPSY
  4. PHENOBARBITONE [Suspect]
     Indication: MYOCLONIC EPILEPSY

REACTIONS (2)
  - HYPERAMMONAEMIA [None]
  - LIVER INJURY [None]
